FAERS Safety Report 10411333 (Version 1)
Quarter: 2014Q3

REPORT INFORMATION
  Report Type: Report from Study
  Country: ZA (occurrence: ZA)
  Receive Date: 20140826
  Receipt Date: 20140826
  Transmission Date: 20150326
  Serious: Yes (Hospitalization, Other)
  Sender: FDA-Public Use
  Company Number: ZA-BAYER-2014-068338

PATIENT
  Sex: Female

DRUGS (1)
  1. BETAFERON [Suspect]
     Active Substance: INTERFERON BETA-1B
     Dosage: UNK
     Dates: end: 2007

REACTIONS (9)
  - Injection site rash [None]
  - Multiple sclerosis relapse [None]
  - Diplopia [Recovered/Resolved]
  - Injection site bruising [None]
  - VIIth nerve paralysis [None]
  - Eye disorder [Recovering/Resolving]
  - Sarcoidosis [Recovering/Resolving]
  - Fatigue [None]
  - Headache [Recovering/Resolving]

NARRATIVE: CASE EVENT DATE: 2007
